FAERS Safety Report 4263818-4 (Version None)
Quarter: 2004Q1

REPORT INFORMATION
  Report Type: 
  Country: None (occurrence: None)
  Receive Date: 20040105
  Receipt Date: 20040105
  Transmission Date: 20041129
  Serious: Yes (Death)
  Sender: FDA-Public Use
  Company Number: None

PATIENT
  Age: 67 Year
  Sex: Female

DRUGS (4)
  1. CARMUSTINE [Suspect]
     Indication: GLIOBLASTOMA MULTIFORME
     Dosage: 200 MG/M2 Q 6 WEEKS IV 190MG (50% PER PROTOCOL)
     Route: 042
     Dates: start: 20030804
  2. CARMUSTINE [Suspect]
     Indication: GLIOBLASTOMA MULTIFORME
     Dosage: 200 MG/M2 Q 6 WEEKS IV 190MG (50% PER PROTOCOL)
     Route: 042
     Dates: start: 20030915
  3. CARMUSTINE [Suspect]
     Indication: GLIOBLASTOMA MULTIFORME
     Dosage: 200 MG/M2 Q 6 WEEKS IV 190MG (50% PER PROTOCOL)
     Route: 042
     Dates: start: 20031027
  4. CARMUSTINE [Suspect]
     Indication: GLIOBLASTOMA MULTIFORME
     Dosage: 200 MG/M2 Q 6 WEEKS IV 190MG (50% PER PROTOCOL)
     Route: 042
     Dates: start: 20031208

REACTIONS (4)
  - ASTHENIA [None]
  - COMA [None]
  - DEEP VEIN THROMBOSIS [None]
  - PULMONARY EMBOLISM [None]
